FAERS Safety Report 18343194 (Version 1)
Quarter: 2020Q4

REPORT INFORMATION
  Report Type: Spontaneous
  Country: US (occurrence: US)
  Receive Date: 20201001
  Receipt Date: 20201001
  Transmission Date: 20210113
  Serious: Yes (Hospitalization)
  Sender: FDA-Public Use
  Company Number: None

PATIENT
  Age: 8 Month
  Sex: Male
  Weight: 7.7 kg

DRUGS (4)
  1. ZINECARD [Suspect]
     Active Substance: DEXRAZOXANE HYDROCHLORIDE
     Dates: end: 20200725
  2. CISPLATIN. [Suspect]
     Active Substance: CISPLATIN
     Dates: end: 20200724
  3. DOXORUBICIN HYDROCHLORIDE. [Suspect]
     Active Substance: DOXORUBICIN HYDROCHLORIDE
     Dates: end: 20200725
  4. VINCRISTINE SULFATE. [Suspect]
     Active Substance: VINCRISTINE SULFATE
     Dates: end: 20200724

REACTIONS (7)
  - Toxicity to various agents [None]
  - Varicella [None]
  - Diarrhoea [None]
  - Rash vesicular [None]
  - Acarodermatitis [None]
  - Rash erythematous [None]
  - Bacterial sepsis [None]

NARRATIVE: CASE EVENT DATE: 20200728
